FAERS Safety Report 7646998-X (Version None)
Quarter: 2011Q3

REPORT INFORMATION
  Report Type: 
  Country: None (occurrence: None)
  Receive Date: 20110801
  Receipt Date: 20110720
  Transmission Date: 20111222
  Serious: Yes (Hospitalization)
  Sender: FDA-Public Use
  Company Number: CZ-TEVA-288273ISR

PATIENT
  Age: 65 Year
  Sex: Female
  Weight: 57.1 kg

DRUGS (9)
  1. UNKNOWN MEDICINE [Suspect]
     Dosage: 20 MILLIGRAM;
     Route: 048
     Dates: start: 20110606
  2. LEVOTHYROXINE SODIUM [Concomitant]
     Indication: HYPOTHYROIDISM
     Route: 048
     Dates: start: 20000101
  3. FOLIC ACID [Concomitant]
     Indication: DRUG TOXICITY PROPHYLAXIS
     Route: 048
     Dates: start: 20080312
  4. CITALOPRAM HYDROBROMIDE [Concomitant]
     Indication: DEPRESSION
     Dosage: 20 MILLIGRAM;
     Route: 048
     Dates: start: 20070101
  5. UNKNOWN MEDICINE [Suspect]
     Indication: RHEUMATOID ARTHRITIS
     Dosage: 20 MILLIGRAM;
     Route: 048
     Dates: start: 20100830, end: 20110531
  6. COLECALCIFEROL [Concomitant]
     Indication: OSTEOPOROSIS
     Dosage: 880 IU (INTERNATIONAL UNIT);
     Route: 048
     Dates: start: 20060101
  7. METHOTREXATE [Suspect]
     Indication: RHEUMATOID ARTHRITIS
     Route: 048
     Dates: start: 20090618
  8. METHYLPREDNISOLONE [Concomitant]
     Indication: RHEUMATOID ARTHRITIS
     Dosage: 4 MILLIGRAM;
     Route: 048
     Dates: start: 20090618
  9. AMLODIPINE BESYLATE [Concomitant]
     Indication: HYPERTENSION
     Dosage: 5 MILLIGRAM;
     Route: 048
     Dates: start: 20040101

REACTIONS (1)
  - SQUAMOUS CELL CARCINOMA [None]
